FAERS Safety Report 16090943 (Version 3)
Quarter: 2019Q2

REPORT INFORMATION
  Report Type: Report from Study
  Country: FR (occurrence: FR)
  Receive Date: 20190319
  Receipt Date: 20190502
  Transmission Date: 20190711
  Serious: Yes (Hospitalization)
  Sender: FDA-Public Use
  Company Number: PHHO2018FR007493

PATIENT
  Age: 59 Year
  Sex: Male
  Weight: 72.5 kg

DRUGS (14)
  1. BLINDED NO TREATMENT RECEIVED [Suspect]
     Active Substance: INVESTIGATIONAL PRODUCT
     Indication: BRONCHIECTASIS
     Dosage: CODE NOT BROKEN
     Route: 055
     Dates: start: 20180516, end: 20180706
  2. BLINDED TOBRAMYCIN INHALATION POWDER [Suspect]
     Active Substance: UNSPECIFIED INGREDIENT
     Indication: PSEUDOMONAS INFECTION
  3. FLUTICASONE. [Concomitant]
     Active Substance: FLUTICASONE
     Indication: BRONCHIECTASIS
     Dosage: 100 MG, BID
     Route: 065
     Dates: start: 2000
  4. ASPIRIN. [Concomitant]
     Active Substance: ASPIRIN
     Indication: MYOCARDIAL INFARCTION
     Dosage: 100 MG, QD
     Route: 065
     Dates: start: 2017
  5. METFORMIN [Concomitant]
     Active Substance: METFORMIN HYDROCHLORIDE
     Indication: DIABETES MELLITUS
     Dosage: 1000 MG, BID
     Route: 065
     Dates: start: 2010
  6. TELMISARTAN. [Concomitant]
     Active Substance: TELMISARTAN
     Indication: HYPERTENSION
     Dosage: 80 MG, QD
     Route: 065
     Dates: start: 2008
  7. BLINDED PLACEBO [Suspect]
     Active Substance: INVESTIGATIONAL PRODUCT
     Indication: BRONCHIECTASIS
     Dosage: CODE NOT BROKEN
     Route: 055
     Dates: start: 20180516, end: 20180706
  8. CITALOPRAM [Concomitant]
     Active Substance: CITALOPRAM HYDROBROMIDE
     Indication: DEPRESSION
     Dosage: 10 MG, QD
     Route: 065
     Dates: start: 2008
  9. BLINDED TOBRAMYCIN INHALATION POWDER [Suspect]
     Active Substance: UNSPECIFIED INGREDIENT
     Indication: BRONCHIECTASIS
     Dosage: CODE NOT BROKEN
     Route: 055
     Dates: start: 20180516, end: 20180706
  10. BLINDED NO TREATMENT RECEIVED [Suspect]
     Active Substance: INVESTIGATIONAL PRODUCT
     Indication: PSEUDOMONAS INFECTION
  11. BLINDED PLACEBO [Suspect]
     Active Substance: INVESTIGATIONAL PRODUCT
     Indication: PSEUDOMONAS INFECTION
  12. ESOMEPRAZOLE. [Concomitant]
     Active Substance: ESOMEPRAZOLE MAGNESIUM
     Indication: PRODUCT USED FOR UNKNOWN INDICATION
     Dosage: 40 MG, QD
     Route: 065
     Dates: start: 2000
  13. TEGRETOL [Concomitant]
     Active Substance: CARBAMAZEPINE
     Indication: EPILEPSY
     Dosage: 200 MG, BID
     Route: 065
     Dates: start: 2003
  14. INDAPAMIDE. [Concomitant]
     Active Substance: INDAPAMIDE
     Indication: HYPERTENSION
     Dosage: 1.5 MG, QD
     Route: 065
     Dates: start: 2000

REACTIONS (1)
  - Infective exacerbation of bronchiectasis [Recovered/Resolved]

NARRATIVE: CASE EVENT DATE: 20180617
